FAERS Safety Report 25415960 (Version 1)
Quarter: 2025Q2

REPORT INFORMATION
  Report Type: Spontaneous
  Country: NL (occurrence: NL)
  Receive Date: 20250610
  Receipt Date: 20250610
  Transmission Date: 20250717
  Serious: Yes (Other)
  Sender: CHEPLAPHARM
  Company Number: None

PATIENT
  Age: 52 Year
  Sex: Female
  Weight: 65 kg

DRUGS (2)
  1. QUETIAPINE [Suspect]
     Active Substance: QUETIAPINE
     Indication: Bipolar disorder
     Dosage: 1X 100?DAILY DOSE: 100 MILLIGRAM
     Route: 048
     Dates: start: 20250508, end: 20250509
  2. QUETIAPINE [Suspect]
     Active Substance: QUETIAPINE
     Indication: Bipolar disorder
     Dosage: 1X 200 PER DAY?DAILY DOSE: 200 MILLIGRAM
     Dates: start: 20250508, end: 20250509

REACTIONS (9)
  - Electrocardiogram QT prolonged [Recovered/Resolved]
  - Loss of consciousness [Recovering/Resolving]
  - Fatigue [Recovering/Resolving]
  - Dysarthria [Recovered/Resolved]
  - Limb discomfort [Recovering/Resolving]
  - Injury [Unknown]
  - Drug hypersensitivity [Unknown]
  - Heart rate decreased [Unknown]
  - Fall [Unknown]
